FAERS Safety Report 6830731-5 (Version None)
Quarter: 2010Q3

REPORT INFORMATION
  Report Type: 
  Country: None (occurrence: None)
  Receive Date: 20100709
  Receipt Date: 20100709
  Transmission Date: 20110219
  Serious: Yes (Hospitalization)
  Sender: FDA-Public Use
  Company Number: None

PATIENT
  Sex: Male
  Weight: 62 kg

DRUGS (9)
  1. TEMOZOLOMIDE [Suspect]
     Indication: GLIOSARCOMA
     Dosage: 75MG/M2 DAILY PO
     Route: 048
     Dates: start: 20100419, end: 20100528
  2. PACLITAXEL [Suspect]
     Indication: GLIOSARCOMA
     Dosage: 40MG/M2 WKLY X6 IV
     Route: 042
     Dates: start: 20100419
  3. PACLITAXEL [Suspect]
     Indication: GLIOSARCOMA
     Dosage: 40MG/M2 WKLY X6 IV
     Route: 042
     Dates: start: 20100420
  4. PACLITAXEL [Suspect]
     Indication: GLIOSARCOMA
     Dosage: 40MG/M2 WKLY X6 IV
     Route: 042
     Dates: start: 20100506
  5. PACLITAXEL [Suspect]
     Indication: GLIOSARCOMA
     Dosage: 40MG/M2 WKLY X6 IV
     Route: 042
     Dates: start: 20100510
  6. PACLITAXEL [Suspect]
     Indication: GLIOSARCOMA
     Dosage: 40MG/M2 WKLY X6 IV
     Route: 042
     Dates: start: 20100517
  7. PACLITAXEL [Suspect]
     Indication: GLIOSARCOMA
     Dosage: 40MG/M2 WKLY X6 IV
     Route: 042
     Dates: start: 20100524
  8. KEPPRA [Concomitant]
  9. PENTAMIDINE ISETHIONATE [Concomitant]

REACTIONS (2)
  - NEUTROPENIA [None]
  - THROMBOCYTOPENIA [None]
